FAERS Safety Report 25957071 (Version 1)
Quarter: 2025Q4

REPORT INFORMATION
  Report Type: Spontaneous
  Country: US (occurrence: None)
  Receive Date: 20251023
  Receipt Date: 20251023
  Transmission Date: 20260118
  Serious: Yes (Life-Threatening, Other)
  Sender: FDA-CTU
  Company Number: None

PATIENT
  Age: 26 Year
  Sex: Female
  Weight: 112.5 kg

DRUGS (3)
  1. QELBREE [Suspect]
     Active Substance: VILOXAZINE HYDROCHLORIDE
     Indication: Attention deficit hyperactivity disorder
     Dosage: OTHER QUANTITY : 1 CAPSULE(S);?FREQUENCY : DAILY;?
     Route: 048
     Dates: start: 20250807, end: 20250929
  2. QELBREE [Suspect]
     Active Substance: VILOXAZINE HYDROCHLORIDE
  3. VILOXAZINE [Suspect]
     Active Substance: VILOXAZINE

REACTIONS (9)
  - Suicidal ideation [None]
  - Intentional self-injury [None]
  - Nausea [None]
  - Irritability [None]
  - Aggression [None]
  - Decreased appetite [None]
  - Middle insomnia [None]
  - Depression [None]
  - Aggression [None]

NARRATIVE: CASE EVENT DATE: 20251019
